FAERS Safety Report 9918031 (Version 3)
Quarter: 2014Q2

REPORT INFORMATION
  Report Type: Spontaneous
  Country: SE (occurrence: SE)
  Receive Date: 20140222
  Receipt Date: 20140404
  Transmission Date: 20141212
  Serious: Yes (Other)
  Sender: FDA-Public Use
  Company Number: SE-AMGEN-SWESP2014011987

PATIENT
  Age: 67 Year
  Sex: Male
  Weight: 89 kg

DRUGS (7)
  1. XGEVA [Suspect]
     Indication: METASTASES TO BONE
     Dosage: 120 MG, Q4WK
     Route: 058
     Dates: start: 20130805, end: 20140129
  2. CASODEX [Concomitant]
     Route: 048
  3. CALCICHEW [Concomitant]
     Route: 048
  4. OXYNORM [Concomitant]
     Route: 048
  5. VANTAS [Concomitant]
     Route: 058
  6. TAXOTERE [Concomitant]
     Indication: PROSTATE CANCER
     Dosage: UNK UNK, Q3WK
     Route: 042
     Dates: start: 20130610, end: 20131104
  7. ZYTIGA [Concomitant]

REACTIONS (2)
  - Pathological fracture [Unknown]
  - Osteonecrosis of jaw [Recovered/Resolved]
